FAERS Safety Report 11856776 (Version 1)
Quarter: 2015Q4

REPORT INFORMATION
  Report Type: Spontaneous
  Country: US (occurrence: None)
  Receive Date: 20151218
  Receipt Date: 20151218
  Transmission Date: 20160305
  Serious: No
  Sender: FDA-Public Use
  Company Number: None

PATIENT
  Age: 38 Year
  Sex: Female
  Weight: 136.08 kg

DRUGS (7)
  1. SYNTHROID [Concomitant]
     Active Substance: LEVOTHYROXINE SODIUM
  2. FLUCONAZOLE 150 MG NORTHSTAR [Suspect]
     Active Substance: FLUCONAZOLE
     Indication: HYPERSENSITIVITY
     Route: 048
     Dates: start: 20151214, end: 20151214
  3. METFORMIN [Concomitant]
     Active Substance: METFORMIN HYDROCHLORIDE
  4. IBUPROFEN. [Concomitant]
     Active Substance: IBUPROFEN
  5. ALDACTONE [Concomitant]
     Active Substance: SPIRONOLACTONE
  6. FLUCONAZOLE 150 MG NORTHSTAR [Suspect]
     Active Substance: FLUCONAZOLE
     Indication: VULVOVAGINAL MYCOTIC INFECTION
     Route: 048
     Dates: start: 20151214, end: 20151214
  7. ZOLOFT [Concomitant]
     Active Substance: SERTRALINE HYDROCHLORIDE

REACTIONS (7)
  - Swollen tongue [None]
  - Lip disorder [None]
  - Pain [None]
  - Gingival pain [None]
  - Erythema [None]
  - Dyspnoea [None]
  - Oropharyngeal pain [None]

NARRATIVE: CASE EVENT DATE: 20151214
